FAERS Safety Report 10272859 (Version 1)
Quarter: 2014Q1

REPORT INFORMATION
  Report Type: Spontaneous
  Country: US (occurrence: None)
  Receive Date: 20140306
  Receipt Date: 20140306
  Transmission Date: 20141002
  Serious: Yes (Other)
  Sender: FDA-Public Use
  Company Number: 163-21880-13081224

PATIENT
  Age: 70 Year
  Sex: Female
  Weight: 61.2 kg

DRUGS (3)
  1. REVLIMID [Suspect]
     Indication: PLASMA CELL MYELOMA
     Route: 048
     Dates: start: 201104
  2. MULTIVITAMINS (MULTIVITAMINS) (UNKNOWN) [Concomitant]
  3. GABAPENTIN (GABAPENTIN) (UNKNOWN) (GABAPENTIN) [Concomitant]

REACTIONS (1)
  - Deep vein thrombosis [None]
